FAERS Safety Report 8585744-2 (Version None)
Quarter: 2012Q3

REPORT INFORMATION
  Report Type: 
  Country: None (occurrence: None)
  Receive Date: 20120810
  Receipt Date: 20120615
  Transmission Date: 20120928
  Serious: No
  Sender: FDA-Public Use
  Company Number: US-009507513-2012SP035524

PATIENT

DRUGS (1)
  1. COPPERTONE WATER BABIES LOTION SPF-50 [Suspect]
     Indication: PRODUCT USED FOR UNKNOWN INDICATION
     Dosage: UNK UNK, UNKNOWN
     Route: 061
     Dates: start: 20120614

REACTIONS (2)
  - URTICARIA [None]
  - HYPERSENSITIVITY [None]
